FAERS Safety Report 17780591 (Version 4)
Quarter: 2021Q4

REPORT INFORMATION
  Report Type: Report from Study
  Country: CA (occurrence: CA)
  Receive Date: 20200513
  Receipt Date: 20211026
  Transmission Date: 20220304
  Serious: Yes (Other)
  Sender: FDA-Public Use
  Company Number: CA-JNJFOC-20200504955

PATIENT
  Age: 74 Year
  Sex: Male
  Weight: 82 kg

DRUGS (1)
  1. REMICADE [Suspect]
     Active Substance: INFLIXIMAB
     Indication: Psoriatic arthropathy
     Dosage: ROUTINE TREATMENT RENEWAL, PATIENT OFF LABEL, 6 WEEKS
     Route: 042
     Dates: start: 20100217

REACTIONS (1)
  - Malignant melanoma [Recovered/Resolved]

NARRATIVE: CASE EVENT DATE: 20200201
